FAERS Safety Report 9631103 (Version 2)
Quarter: 2013Q4

REPORT INFORMATION
  Report Type: Spontaneous
  Country: GB (occurrence: None)
  Receive Date: 20131015
  Receipt Date: 20131022
  Transmission Date: 20140711
  Serious: Yes (Other)
  Sender: FDA-Public Use
  Company Number: KAD201310-001336

PATIENT
  Sex: Male

DRUGS (3)
  1. RIBAVIRIN [Suspect]
     Indication: HEPATITIS C
     Route: 048
     Dates: start: 20130206
  2. PEGINTERFERON ALFA-2B (PEGINTERFERON ALFA 2B) [Suspect]
     Indication: HEPATITIS C
     Dosage: ONCE WEEKLY
     Route: 058
     Dates: start: 20130206
  3. INCIVO [Suspect]
     Indication: HEPATITIS C
     Dosage: THRICE DAILY
     Dates: start: 20130206

REACTIONS (11)
  - Depression [None]
  - Anorectal disorder [None]
  - Anaemia [None]
  - Depressed mood [None]
  - Mood swings [None]
  - Insomnia [None]
  - Nausea [None]
  - Fatigue [None]
  - Lethargy [None]
  - Thirst [None]
  - Insomnia [None]
